FAERS Safety Report 5210253-8 (Version None)
Quarter: 2007Q1

REPORT INFORMATION
  Report Type: 
  Country: None (occurrence: None)
  Receive Date: 20070112
  Receipt Date: 20070112
  Transmission Date: 20070707
  Serious: No
  Sender: FDA-Public Use
  Company Number: None

PATIENT
  Sex: Male

DRUGS (1)
  1. TRAZODONE HCL [Suspect]
     Dosage: 100MG  HS  PO
     Route: 048
     Dates: start: 20061013, end: 20061113

REACTIONS (1)
  - WHITE BLOOD CELL COUNT DECREASED [None]
